FAERS Safety Report 8599287-3 (Version None)
Quarter: 2012Q3

REPORT INFORMATION
  Report Type: 
  Country: None (occurrence: None)
  Receive Date: 20120816
  Receipt Date: 20120710
  Transmission Date: 20120928
  Serious: No
  Sender: FDA-Public Use
  Company Number: US-AMGEN-USASP2012042751

PATIENT
  Sex: Female
  Weight: 10.9 kg

DRUGS (1)
  1. NEUPOGEN [Suspect]
     Indication: AUTOIMMUNE NEUTROPENIA
     Dosage: 5 MUG/KG, QWK
     Dates: start: 20110101, end: 20110801

REACTIONS (3)
  - MALAISE [None]
  - NEUTROPHIL COUNT ABNORMAL [None]
  - INFECTION SUSCEPTIBILITY INCREASED [None]
